FAERS Safety Report 4639916-X (Version None)
Quarter: 2005Q2

REPORT INFORMATION
  Report Type: 
  Country: None (occurrence: None)
  Receive Date: 20050328
  Receipt Date: 20050105
  Transmission Date: 20051028
  Serious: No
  Sender: FDA-Public Use
  Company Number: USA050187513

PATIENT
  Age: 49 Year
  Sex: Male
  Weight: 91 kg

DRUGS (4)
  1. STRATTERA [Suspect]
     Indication: ATTENTION DEFICIT/HYPERACTIVITY DISORDER
     Dosage: 80 MG DAY
     Dates: start: 20041201
  2. NEURONTIN (GABAPENTIN PFIZER) [Concomitant]
  3. VICODIN [Concomitant]
  4. OXYCONTIN [Concomitant]

REACTIONS (3)
  - DRUG INEFFECTIVE [None]
  - MIDDLE INSOMNIA [None]
  - NERVOUSNESS [None]
